FAERS Safety Report 13772918 (Version 1)
Quarter: 2017Q3

REPORT INFORMATION
  Report Type: Spontaneous
  Country: US (occurrence: US)
  Receive Date: 20170720
  Receipt Date: 20170720
  Transmission Date: 20171127
  Serious: Yes (Other)
  Sender: FDA-Public Use
  Company Number: US-MALLINCKRODT-T201702693

PATIENT
  Age: 59 Year
  Sex: Male

DRUGS (1)
  1. H.P. ACTHAR [Suspect]
     Active Substance: CORTICOTROPIN
     Indication: MULTIPLE SCLEROSIS
     Dosage: 80 UNITS, DAILY
     Route: 048
     Dates: start: 20170615

REACTIONS (4)
  - Intentional product use issue [Unknown]
  - Panic attack [Unknown]
  - Mental disorder [Unknown]
  - Presyncope [Unknown]

NARRATIVE: CASE EVENT DATE: 20170622
